FAERS Safety Report 18418924 (Version 1)
Quarter: 2020Q4

REPORT INFORMATION
  Report Type: Spontaneous
  Country: IN (occurrence: IN)
  Receive Date: 20201023
  Receipt Date: 20201023
  Transmission Date: 20210114
  Serious: Yes (Hospitalization, Other)
  Sender: FDA-Public Use
  Company Number: IN-STRIDES ARCOLAB LIMITED-2020SP012633

PATIENT
  Age: 50 Year
  Sex: Male

DRUGS (5)
  1. RITONAVIR. [Suspect]
     Active Substance: RITONAVIR
     Indication: HIV INFECTION
     Dosage: UNK
     Route: 065
  2. ATAZANAVIR. [Concomitant]
     Active Substance: ATAZANAVIR
     Indication: HIV INFECTION
     Dosage: UNK
     Route: 065
  3. LAMIVUDINE. [Concomitant]
     Active Substance: LAMIVUDINE
     Indication: HIV INFECTION
     Dosage: UNK
     Route: 065
  4. TENOFOVIR DISOPROXIL FUMARATE. [Suspect]
     Active Substance: TENOFOVIR DISOPROXIL FUMARATE
     Indication: HIV INFECTION
     Dosage: UNK
     Route: 065
  5. DICLOFENAC [Interacting]
     Active Substance: DICLOFENAC
     Indication: PRODUCT USED FOR UNKNOWN INDICATION
     Dosage: 50 MILLIGRAM, INTERMITTENTLY OVER THE PREVIOUS 2 MONTHS
     Route: 065

REACTIONS (24)
  - Blood alkaline phosphatase increased [Unknown]
  - Quality of life decreased [Unknown]
  - Weight decreased [Unknown]
  - Fatigue [Unknown]
  - Anaemia macrocytic [Unknown]
  - Albuminuria [Recovered/Resolved]
  - Blood creatinine increased [Recovered/Resolved]
  - Asthenia [Unknown]
  - Nephropathy toxic [Recovered/Resolved]
  - Musculoskeletal toxicity [Recovered/Resolved]
  - Pathological fracture [Recovered/Resolved]
  - Gait disturbance [Unknown]
  - Drug interaction [Unknown]
  - Hypokalaemia [Recovered/Resolved]
  - Renal tubular acidosis [Recovered/Resolved]
  - Blood bicarbonate decreased [Recovered/Resolved]
  - Hypokinesia [Unknown]
  - Normochromic anaemia [Unknown]
  - Hypophosphataemia [Recovered/Resolved]
  - Glycosuria [Recovered/Resolved]
  - Pain in extremity [Recovered/Resolved]
  - Myalgia [Unknown]
  - Metabolic acidosis [Recovered/Resolved]
  - Decreased appetite [Recovered/Resolved]
